FAERS Safety Report 5075006-2 (Version None)
Quarter: 2006Q3

REPORT INFORMATION
  Report Type: 
  Country: None (occurrence: None)
  Receive Date: 20060807
  Receipt Date: 20060807
  Transmission Date: 20061208
  Serious: Yes (Life-Threatening, Hospitalization)
  Sender: FDA-Public Use
  Company Number: None

PATIENT
  Sex: Female
  Weight: 56 kg

DRUGS (5)
  1. CYMBALTA [Suspect]
     Indication: PAIN
     Dosage: 30MG   QD   PO
     Route: 048
     Dates: start: 20060720, end: 20060727
  2. CYMBALTA [Suspect]
     Indication: DEPRESSION
     Dosage: 60MG   QD   PO
     Route: 048
     Dates: start: 20060728, end: 20060802
  3. DURAGESIC-100 [Concomitant]
  4. RITALIN [Concomitant]
  5. DEPO-PROVERA [Concomitant]

REACTIONS (3)
  - ALCOHOL USE [None]
  - HEPATITIS ACUTE [None]
  - PANCREATITIS ACUTE [None]
